FAERS Safety Report 6193586-0 (Version None)
Quarter: 2009Q2

REPORT INFORMATION
  Report Type: 
  Country: None (occurrence: None)
  Receive Date: 20090514
  Receipt Date: 20090429
  Transmission Date: 20091009
  Serious: Yes (Other)
  Sender: FDA-Public Use
  Company Number: 8045918

PATIENT
  Age: 65 Year
  Sex: Male

DRUGS (12)
  1. KEPPRA [Suspect]
     Indication: EPILEPSY
     Dosage: 250 MG 1/D PO
     Route: 047
     Dates: start: 20090101, end: 20090101
  2. KEPPRA [Suspect]
     Indication: EPILEPSY
     Dosage: /D PO
     Route: 048
     Dates: start: 20090101, end: 20090311
  3. KEPPRA [Suspect]
     Indication: EPILEPSY
     Dosage: 1250 MG /D PO
     Route: 048
     Dates: start: 20090312, end: 20090316
  4. KEPPRA [Suspect]
     Indication: EPILEPSY
     Dosage: 1000 MG 1/D PO
     Route: 048
     Dates: start: 20090317, end: 20090401
  5. KEPPRA [Suspect]
     Indication: EPILEPSY
     Dosage: 750 MG 1/D PO
     Route: 048
     Dates: start: 20090402
  6. RIVOTRIL [Suspect]
     Indication: EPILEPSY
     Dosage: 0.25 MG 1/D PO
     Route: 048
     Dates: start: 20090316, end: 20090401
  7. RIVOTRIL [Suspect]
     Indication: EPILEPSY
     Dosage: 1 MG 1/D PO
     Route: 048
     Dates: start: 20090402, end: 20090401
  8. RIVOTRIL [Suspect]
     Indication: EPILEPSY
     Dosage: 0.25 MG 1/D PO
     Route: 048
     Dates: start: 20090401
  9. LEPONEX [Suspect]
     Dosage: 18.75 MG 1/D PO
     Route: 048
     Dates: start: 20080301
  10. TORASIS [Concomitant]
  11. CLEXANE [Concomitant]
  12. DAFALGAN /00020001/ [Concomitant]

REACTIONS (7)
  - DYSPHAGIA [None]
  - EPILEPSY [None]
  - HICCUPS [None]
  - MYOCLONUS [None]
  - SALIVARY HYPERSECRETION [None]
  - SOMNOLENCE [None]
  - URINARY TRACT INFECTION [None]
